FAERS Safety Report 16487913 (Version 5)
Quarter: 2019Q3

REPORT INFORMATION
  Report Type: Spontaneous
  Country: US (occurrence: US)
  Receive Date: 20190627
  Receipt Date: 20190712
  Transmission Date: 20191004
  Serious: Yes (Hospitalization, Other)
  Sender: FDA-Public Use
  Company Number: US-ALEXION-A201909487

PATIENT
  Sex: Female

DRUGS (2)
  1. SOLIRIS [Suspect]
     Active Substance: ECULIZUMAB
     Indication: MYASTHENIA GRAVIS
     Dosage: 1200 MG, Q2W
     Route: 042
     Dates: start: 20181130, end: 20190502
  2. SOLIRIS [Suspect]
     Active Substance: ECULIZUMAB
     Dosage: 1200 MG, Q2W
     Route: 042
     Dates: start: 20181130, end: 20190503

REACTIONS (7)
  - Pyrexia [Not Recovered/Not Resolved]
  - Skin ulcer [Not Recovered/Not Resolved]
  - Meningitis cryptococcal [Unknown]
  - Pneumonia cryptococcal [Not Recovered/Not Resolved]
  - Wound [Unknown]
  - Pneumonia aspiration [Recovering/Resolving]
  - Vocal cord operation [Recovering/Resolving]

NARRATIVE: CASE EVENT DATE: 20190506
